FAERS Safety Report 24583022 (Version 2)
Quarter: 2025Q1

REPORT INFORMATION
  Report Type: Spontaneous
  Country: US (occurrence: US)
  Receive Date: 20241106
  Receipt Date: 20250226
  Transmission Date: 20250408
  Serious: No
  Sender: UCB
  Company Number: US-UCBSA-2024036906

PATIENT
  Age: 22 Year

DRUGS (12)
  1. LEVETIRACETAM [Suspect]
     Active Substance: LEVETIRACETAM
     Indication: Status epilepticus
  2. LEVETIRACETAM [Suspect]
     Active Substance: LEVETIRACETAM
     Indication: Serotonin syndrome
  3. LEVETIRACETAM [Suspect]
     Active Substance: LEVETIRACETAM
     Indication: Off label use
  4. MIDAZOLAM [Suspect]
     Active Substance: MIDAZOLAM
     Indication: Status epilepticus
  5. MIDAZOLAM [Suspect]
     Active Substance: MIDAZOLAM
     Indication: Serotonin syndrome
  6. MIDAZOLAM [Suspect]
     Active Substance: MIDAZOLAM
     Indication: Sedative therapy
  7. MIDAZOLAM [Suspect]
     Active Substance: MIDAZOLAM
     Indication: Off label use
  8. LACOSAMIDE [Suspect]
     Active Substance: LACOSAMIDE
     Indication: Status epilepticus
  9. LACOSAMIDE [Suspect]
     Active Substance: LACOSAMIDE
     Indication: Serotonin syndrome
  10. LACOSAMIDE [Suspect]
     Active Substance: LACOSAMIDE
     Indication: Off label use
  11. PROPOFOL [Concomitant]
     Active Substance: PROPOFOL
     Indication: Sedation
  12. CYPROHEPTADINE [Concomitant]
     Active Substance: CYPROHEPTADINE
     Indication: Serotonin syndrome

REACTIONS (2)
  - Multiple-drug resistance [Unknown]
  - Off label use [Unknown]
